FAERS Safety Report 12863779 (Version 2)
Quarter: 2019Q2

REPORT INFORMATION
  Report Type: Spontaneous
  Country: CZ (occurrence: CZ)
  Receive Date: 20161019
  Receipt Date: 20190405
  Transmission Date: 20190711
  Serious: Yes (Life-Threatening, Hospitalization, Other)
  Sender: FDA-Public Use
  Company Number: PHHY2016CZ140642

PATIENT
  Age: 60 Year
  Sex: Male

DRUGS (3)
  1. INSULIN [Concomitant]
     Active Substance: INSULIN NOS
     Indication: TYPE 2 DIABETES MELLITUS
     Route: 065
  2. CEFUROXIME. [Suspect]
     Active Substance: CEFUROXIME
     Indication: ANTIBIOTIC PROPHYLAXIS
     Route: 065
  3. METFORMIN [Suspect]
     Active Substance: METFORMIN HYDROCHLORIDE
     Indication: TYPE 2 DIABETES MELLITUS
     Route: 065

REACTIONS (14)
  - Systemic infection [Recovered/Resolved]
  - Hypoglycaemia [Recovered/Resolved]
  - Fall [Recovered/Resolved]
  - Sepsis [Recovered/Resolved]
  - Dyspnoea at rest [Unknown]
  - Altered state of consciousness [Unknown]
  - Pruritus [Unknown]
  - Metabolic acidosis [Recovered/Resolved]
  - Tachypnoea [Unknown]
  - Hyperlactacidaemia [Recovered/Resolved]
  - Acute kidney injury [Recovered/Resolved]
  - Syncope [Recovered/Resolved]
  - Urticaria [Recovered/Resolved]
  - Hypotension [Unknown]
